FAERS Safety Report 11865385 (Version 1)
Quarter: 2015Q4

REPORT INFORMATION
  Report Type: Spontaneous
  Country: FI (occurrence: FI)
  Receive Date: 20151223
  Receipt Date: 20151223
  Transmission Date: 20160305
  Serious: Yes (Other)
  Sender: FDA-Public Use
  Company Number: FI-WATSON-2015-27634

PATIENT
  Age: 34 Year
  Sex: Female

DRUGS (2)
  1. APOCYCLIN [Suspect]
     Active Substance: TETRACYCLINE HYDROCHLORIDE
     Indication: DERMATITIS
     Dosage: 1 DF, DAILY
     Route: 048
     Dates: start: 20151117, end: 20151128
  2. LAMICTAL [Interacting]
     Active Substance: LAMOTRIGINE
     Indication: EPILEPSY
     Dosage: 200 MG, DAILY
     Route: 065
     Dates: start: 20150501

REACTIONS (2)
  - Epilepsy [Recovered/Resolved]
  - Drug interaction [Recovered/Resolved]

NARRATIVE: CASE EVENT DATE: 20151118
